FAERS Safety Report 6497562-X (Version None)
Quarter: 2009Q4

REPORT INFORMATION
  Report Type: 
  Country: None (occurrence: None)
  Receive Date: 20091215
  Receipt Date: 20091202
  Transmission Date: 20100525
  Serious: Yes (Hospitalization)
  Sender: FDA-Public Use
  Company Number: US-ELI_LILLY_AND_COMPANY-US200912000943

PATIENT
  Age: 72 Year
  Sex: Female

DRUGS (9)
  1. FORTEO [Suspect]
     Dosage: 20 UG, DAILY (1/D)
     Dates: start: 20090901
  2. CALCIUM [Concomitant]
  3. ASCORBIC ACID [Concomitant]
  4. OXYGEN [Concomitant]
     Dosage: 2 LITER, DAILY (1/D)
  5. SPIRIVA [Concomitant]
     Route: 055
  6. SYMBICORT [Concomitant]
     Route: 055
  7. PREDNISONE [Concomitant]
     Dosage: 5 MG, DAILY (1/D)
  8. PRO-AIR [Concomitant]
     Route: 055
  9. XOPENEX [Concomitant]
     Dosage: UNK, 2/D
     Route: 055

REACTIONS (1)
  - LUNG INFECTION [None]
